FAERS Safety Report 7105235-5 (Version None)
Quarter: 2010Q4

REPORT INFORMATION
  Report Type: 
  Country: None (occurrence: None)
  Receive Date: 20101116
  Receipt Date: 20101101
  Transmission Date: 20110411
  Serious: Yes (Life-Threatening, Hospitalization)
  Sender: FDA-Public Use
  Company Number: GB-NAPPMUNDI-GBR-2009-0005983

PATIENT
  Sex: Male

DRUGS (6)
  1. OXYCONTIN [Suspect]
     Indication: ANALGESIC THERAPY
     Dosage: UNK
     Route: 065
     Dates: start: 20100707
  2. OXYNORM [Suspect]
     Indication: ANALGESIC THERAPY
     Dosage: 90 MG, UNK
  3. SUNITINIB MALATE [Suspect]
     Indication: PROSTATE CANCER METASTATIC
     Dosage: BLINDED, INFORMATION WITHHELD
     Route: 065
     Dates: start: 20090707, end: 20091026
  4. PREDNISOLONE [Suspect]
     Indication: PROSTATE CANCER METASTATIC
     Dosage: 10 MG, BID
     Route: 048
     Dates: start: 20090707, end: 20091026
  5. DALTEPARIN SODIUM [Concomitant]
     Dosage: 18000 UNK, UNK
     Route: 058
  6. FENTANYL [Concomitant]
     Indication: ANALGESIC THERAPY
     Dosage: UNK

REACTIONS (2)
  - HAEMOGLOBIN DECREASED [None]
  - RESPIRATORY ARREST [None]
